FAERS Safety Report 20076654 (Version 1)
Quarter: 2021Q4

REPORT INFORMATION
  Report Type: Spontaneous
  Country: US (occurrence: None)
  Receive Date: 20211115
  Receipt Date: 20211115
  Transmission Date: 20220303
  Serious: No
  Sender: FDA-Public Use
  Company Number: None

PATIENT

DRUGS (2)
  1. TRANEXAMIC ACID [Suspect]
     Active Substance: TRANEXAMIC ACID
  2. DEVICE [Suspect]
     Active Substance: DEVICE

REACTIONS (2)
  - Poor quality product administered [None]
  - Inadequate aseptic technique in use of product [None]
